FAERS Safety Report 11194678 (Version 2)
Quarter: 2015Q3

REPORT INFORMATION
  Report Type: Spontaneous
  Country: DE (occurrence: DE)
  Receive Date: 20150617
  Receipt Date: 20150820
  Transmission Date: 20151125
  Serious: Yes (Other)
  Sender: FDA-Public Use
  Company Number: DE-ROCHE-1593389

PATIENT
  Age: 7 Year
  Sex: Female
  Weight: 25.5 kg

DRUGS (6)
  1. RITUXIMAB [Suspect]
     Active Substance: RITUXIMAB
     Route: 042
     Dates: start: 20150224
  2. PREDNISOLON [Concomitant]
     Active Substance: PREDNISOLONE
     Dosage: FOUR ADMINISTRATIONS
     Route: 048
     Dates: start: 201501
  3. RITUXIMAB [Suspect]
     Active Substance: RITUXIMAB
     Route: 042
     Dates: start: 20150430
  4. TOCILIZUMAB [Concomitant]
     Active Substance: TOCILIZUMAB
     Route: 042
     Dates: start: 20150722
  5. TOCILIZUMAB [Concomitant]
     Active Substance: TOCILIZUMAB
     Indication: PRODUCT USED FOR UNKNOWN INDICATION
     Route: 042
     Dates: start: 20150624
  6. RITUXIMAB [Suspect]
     Active Substance: RITUXIMAB
     Indication: NEUROMYELITIS OPTICA
     Route: 042
     Dates: start: 20150123

REACTIONS (12)
  - Influenza [Unknown]
  - Headache [Recovered/Resolved]
  - Rash [Recovered/Resolved]
  - Pyrexia [Recovered/Resolved]
  - Dizziness [Recovered/Resolved]
  - Off label use [Unknown]
  - Drug specific antibody present [Not Recovered/Not Resolved]
  - Nausea [Recovered/Resolved]
  - Myelitis transverse [Unknown]
  - Chills [Recovered/Resolved]
  - Hypersensitivity [Recovered/Resolved]
  - Pruritus [Not Recovered/Not Resolved]

NARRATIVE: CASE EVENT DATE: 20150224
